FAERS Safety Report 12033522 (Version 1)
Quarter: 2016Q1

REPORT INFORMATION
  Report Type: Spontaneous
  Country: KR (occurrence: KR)
  Receive Date: 20160207
  Receipt Date: 20160207
  Transmission Date: 20160526
  Serious: Yes (Hospitalization)
  Sender: FDA-Public Use
  Company Number: KR-AMGEN-KORCT2016014293

PATIENT
  Age: 52 Year
  Sex: Female
  Weight: 57.4 kg

DRUGS (29)
  1. DOXORUBICIN [Concomitant]
     Active Substance: DOXORUBICIN
     Dosage: 78 MG, UNK
     Route: 042
     Dates: start: 20151120, end: 20151120
  2. VINCRISTINE [Concomitant]
     Active Substance: VINCRISTINE
     Dosage: 2 MG, UNK
     Route: 042
     Dates: start: 20151120, end: 20151120
  3. APREPITANT. [Concomitant]
     Active Substance: APREPITANT
     Dosage: 80 MG, UNK
     Route: 048
     Dates: start: 20151031
  4. RANITIDINE [Concomitant]
     Active Substance: RANITIDINE\RANITIDINE HYDROCHLORIDE
     Dosage: 300 MG, UNK
     Route: 048
     Dates: start: 20151031, end: 20151102
  5. CHLORPHENIRAMINE                   /00072501/ [Concomitant]
     Active Substance: CHLORPHENIRAMINE
     Dosage: 4 MG, UNK
     Route: 042
     Dates: start: 20151120
  6. RITUXIMAB [Concomitant]
     Active Substance: RITUXIMAB
     Dosage: 577.5 MG, UNK
     Route: 042
     Dates: start: 20151030, end: 20151030
  7. CYCLOPHOSPHAMIDE. [Concomitant]
     Active Substance: CYCLOPHOSPHAMIDE
     Dosage: 1155 MG, UNK
     Route: 042
     Dates: start: 20151030, end: 20151030
  8. VINCRISTINE [Concomitant]
     Active Substance: VINCRISTINE
     Dosage: 2 MG, UNK
     Route: 042
     Dates: start: 20151030, end: 20151030
  9. RAMOSETRON [Concomitant]
     Active Substance: RAMOSETRON HYDROCHLORIDE
     Dosage: 0.3 MG, UNK
     Route: 042
     Dates: start: 20151120
  10. SEPTRIN [Concomitant]
     Active Substance: SULFAMETHOXAZOLE\TRIMETHOPRIM
     Dosage: 1TAB
     Route: 048
     Dates: start: 20151031
  11. FUROSEMIDE. [Concomitant]
     Active Substance: FUROSEMIDE
     Dosage: 20 MG, UNK
     Route: 042
     Dates: start: 20151031, end: 20151031
  12. LEVOFLOXACIN. [Concomitant]
     Active Substance: LEVOFLOXACIN
     Dosage: 500 MG, UNK
     Route: 048
     Dates: start: 20151111, end: 20151119
  13. G-LASTA [Suspect]
     Active Substance: PEGFILGRASTIM
     Dosage: 6 MG, 1X/3WEEKS
     Route: 058
     Dates: start: 20151121
  14. PANTOPRAZOLE SODIUM. [Concomitant]
     Active Substance: PANTOPRAZOLE SODIUM
     Dosage: 40 MG, UNK
     Route: 048
     Dates: start: 20151103, end: 20151103
  15. FUROSEMIDE. [Concomitant]
     Active Substance: FUROSEMIDE
     Dosage: 20 MG, UNK
     Route: 042
     Dates: start: 20151102, end: 20151102
  16. ZALTOPROFEN [Concomitant]
     Active Substance: ZALTOPROFEN
     Dosage: 80 MG, UNK
     Route: 048
     Dates: start: 20151111, end: 20151124
  17. G-LASTA [Suspect]
     Active Substance: PEGFILGRASTIM
     Indication: FEBRILE NEUTROPENIA
     Dosage: 6 MG, 1X/3WEEKS
     Route: 058
     Dates: start: 20151031
  18. RITUXIMAB [Concomitant]
     Active Substance: RITUXIMAB
     Dosage: 581 MG, UNK
     Route: 042
     Dates: start: 20151120, end: 20151120
  19. PREDNISOLONE. [Concomitant]
     Active Substance: PREDNISOLONE
     Dosage: 100 MG, UNK
     Route: 048
     Dates: start: 20151030, end: 20151103
  20. CIPROFLOXACIN. [Concomitant]
     Active Substance: CIPROFLOXACIN
     Dosage: 800 MG, UNK
     Route: 048
     Dates: start: 20151031, end: 20151102
  21. PREDNISOLONE. [Concomitant]
     Active Substance: PREDNISOLONE
     Dosage: 100 MG, UNK
     Route: 048
     Dates: start: 20151120, end: 20151124
  22. APREPITANT. [Concomitant]
     Active Substance: APREPITANT
     Dosage: 125 MG, UNK
     Route: 048
     Dates: start: 20151031
  23. ALLOPURINOL. [Concomitant]
     Active Substance: ALLOPURINOL
     Dosage: 200 MG, UNK
     Route: 048
     Dates: start: 20151031, end: 20151102
  24. PANCREATIN [Concomitant]
     Active Substance: PANCRELIPASE
     Dosage: 457.7 MG, UNK
     Route: 048
     Dates: start: 20151104, end: 20151120
  25. INFLUENZA VACCIN [Concomitant]
     Active Substance: INFLUENZA VIRUS VACCINE
     Dosage: 0.5 ML, UNK
     Route: 030
     Dates: start: 20151112, end: 20151112
  26. ACETAMINOPHEN. [Concomitant]
     Active Substance: ACETAMINOPHEN
     Dosage: 650 MG, UNK
     Route: 048
     Dates: start: 20151120
  27. CYCLOPHOSPHAMIDE. [Concomitant]
     Active Substance: CYCLOPHOSPHAMIDE
     Dosage: 1163 MG, UNK
     Route: 042
     Dates: start: 20151120, end: 20151120
  28. DOXORUBICIN [Concomitant]
     Active Substance: DOXORUBICIN
     Dosage: 77 MG, UNK
     Route: 042
     Dates: start: 20151030, end: 20151030
  29. CIPROFLOXACIN. [Concomitant]
     Active Substance: CIPROFLOXACIN
     Dosage: 1000 MG, UNK
     Route: 048
     Dates: start: 20151120, end: 20151126

REACTIONS (1)
  - Urinary tract infection [Recovered/Resolved]

NARRATIVE: CASE EVENT DATE: 20151210
